FAERS Safety Report 17391887 (Version 1)
Quarter: 2020Q1

REPORT INFORMATION
  Report Type: Report from Study
  Country: US (occurrence: US)
  Receive Date: 20200207
  Receipt Date: 20200207
  Transmission Date: 20200409
  Serious: Yes (Other)
  Sender: FDA-Public Use
  Company Number: NVSC2020US031322

PATIENT
  Sex: Female

DRUGS (3)
  1. CARBOPLATIN FOR INJECTION [Suspect]
     Active Substance: CARBOPLATIN
     Indication: OVARIAN EPITHELIAL CANCER
     Dosage: AUC 4 ON DAY 1 OF EACH 21 DAY CYCLE; TOTAL DOSE 370MG
     Route: 042
     Dates: start: 20190910, end: 20200107
  2. PACLITAXEL. [Suspect]
     Active Substance: PACLITAXEL
     Indication: OVARIAN EPITHELIAL CANCER
     Dosage: 70 MG/M2, ON DAY 1 AND DAY 8 OF EACH 21 DAY CYCLE
     Route: 042
     Dates: start: 20190910, end: 20200114
  3. INC424A [Suspect]
     Active Substance: RUXOLITINIB
     Indication: OVARIAN EPITHELIAL CANCER
     Dosage: 5 MG, BID ON DAY 1-21 OF EACH 21 CYCLE
     Route: 048
     Dates: start: 20190910, end: 20200128

REACTIONS (1)
  - Neutrophil count decreased [Recovering/Resolving]

NARRATIVE: CASE EVENT DATE: 20200127
